FAERS Safety Report 21284872 (Version 1)
Quarter: 2022Q3

REPORT INFORMATION
  Report Type: Spontaneous
  Country: US (occurrence: US)
  Receive Date: 20220902
  Receipt Date: 20220902
  Transmission Date: 20221027
  Serious: Yes (Other)
  Sender: FDA-Public Use
  Company Number: US-BRISTOL-MYERS SQUIBB COMPANY-2022-094240

PATIENT
  Age: 69 Year
  Sex: Female
  Weight: 56.2 kg

DRUGS (1)
  1. ABECMA [Suspect]
     Active Substance: IDECABTAGENE VICLEUCEL
     Indication: Plasma cell myeloma
     Route: 065
     Dates: start: 20220519

REACTIONS (11)
  - Aphasia [Unknown]
  - Headache [Unknown]
  - Encephalopathy [Unknown]
  - Alanine aminotransferase abnormal [Unknown]
  - Tremor [Unknown]
  - Aspartate aminotransferase increased [Unknown]
  - Cytokine release syndrome [Unknown]
  - Fatigue [Unknown]
  - Arthralgia [Unknown]
  - Myalgia [Unknown]
  - Agitation [Unknown]

NARRATIVE: CASE EVENT DATE: 20220519
